FAERS Safety Report 15450334 (Version 2)
Quarter: 2019Q2

REPORT INFORMATION
  Report Type: Spontaneous
  Country: US (occurrence: US)
  Receive Date: 20181001
  Receipt Date: 20190502
  Transmission Date: 20190711
  Serious: No
  Sender: FDA-Public Use
  Company Number: US-PFIZER INC-2018393853

PATIENT
  Sex: Male

DRUGS (1)
  1. EFFEXOR XR [Suspect]
     Active Substance: VENLAFAXINE HYDROCHLORIDE
     Dosage: 75 MG, UNK

REACTIONS (5)
  - Impaired driving ability [Unknown]
  - Drug intolerance [Unknown]
  - Emotional disorder [Unknown]
  - Anxiety [Unknown]
  - Feeling abnormal [Recovering/Resolving]
